FAERS Safety Report 4814860-3 (Version None)
Quarter: 2005Q4

REPORT INFORMATION
  Report Type: 
  Country: None (occurrence: None)
  Receive Date: 20051028
  Receipt Date: 20040618
  Transmission Date: 20060501
  Serious: Yes (Hospitalization)
  Sender: FDA-Public Use
  Company Number: FR-ROCHE-371509

PATIENT
  Age: 57 Year
  Sex: Male
  Weight: 88 kg

DRUGS (9)
  1. PEG-INTERFERON ALFA 2A (RO 25-8310) [Suspect]
     Indication: HEPATITIS C
     Route: 058
     Dates: start: 20031015, end: 20040402
  2. PEG-INTERFERON ALFA 2A (RO 25-8310) [Suspect]
     Route: 058
  3. RIBAVIRIN [Suspect]
     Indication: HEPATITIS C
     Route: 048
     Dates: start: 20031015
  4. CYCLOSPORINE [Concomitant]
     Route: 048
  5. ALPRESS [Concomitant]
     Dosage: TOTAL DAILY DOSE REPORTED AS 1 X 2/DAY
     Route: 048
  6. NICARDIPINE HCL [Concomitant]
     Dosage: TOTAL DAILY DOSE REPORTED AS 1/DAY
     Route: 048
  7. TARDYFERON [Concomitant]
     Dosage: TOTAL DAILY DOSE REPORTED AS 1 X 2/DAY DRUG NAME REPORTED AS TARDYFERON 80
     Route: 048
  8. PROZAC [Concomitant]
     Dosage: TOTAL DAILY DOSE REPORTED AS 1/DAY
     Route: 048
  9. REBETOL [Concomitant]
     Dosage: TOTAL DAILY DOSE REPORTED AS 1 X 2/DAY DRUG NAME REPORTED AS REBETOL 200

REACTIONS (5)
  - ALANINE AMINOTRANSFERASE INCREASED [None]
  - ASPARTATE AMINOTRANSFERASE INCREASED [None]
  - BLOOD ALKALINE PHOSPHATASE INCREASED [None]
  - GAMMA-GLUTAMYLTRANSFERASE INCREASED [None]
  - HEPATIC NEOPLASM [None]
